FAERS Safety Report 15371473 (Version 1)
Quarter: 2018Q3

REPORT INFORMATION
  Report Type: Spontaneous
  Country: FI (occurrence: FI)
  Receive Date: 20180911
  Receipt Date: 20180911
  Transmission Date: 20181010
  Serious: Yes (Life-Threatening)
  Sender: FDA-Public Use
  Company Number: FI-ABBVIE-18K-055-2481362-00

PATIENT
  Age: 16 Year
  Sex: Male

DRUGS (3)
  1. HUMIRA [Suspect]
     Active Substance: ADALIMUMAB
     Indication: JUVENILE IDIOPATHIC ARTHRITIS
     Dosage: 40,MG,CYCLICAL
     Route: 058
     Dates: start: 20151008, end: 20180713
  2. METHOTREXATE. [Concomitant]
     Active Substance: METHOTREXATE
     Indication: JUVENILE IDIOPATHIC ARTHRITIS
     Route: 048
     Dates: start: 20141128, end: 20180713
  3. TREXAN [Concomitant]
     Active Substance: METHOTREXATE SODIUM
     Indication: JUVENILE IDIOPATHIC ARTHRITIS
     Dosage: 15,MG,WEEKLY
     Route: 048
     Dates: start: 20141128, end: 20180713

REACTIONS (3)
  - Staphylococcus test positive [Recovering/Resolving]
  - Muscle abscess [Recovering/Resolving]
  - Chest wall abscess [Recovering/Resolving]

NARRATIVE: CASE EVENT DATE: 20180701
